FAERS Safety Report 9430034 (Version 1)
Quarter: 2013Q3

REPORT INFORMATION
  Report Type: Report from Study
  Country: CZ (occurrence: CZ)
  Receive Date: 20130730
  Receipt Date: 20130730
  Transmission Date: 20140515
  Serious: Yes (Hospitalization)
  Sender: FDA-Public Use
  Company Number: CZ-JNJFOC-20130712126

PATIENT
  Age: 48 Year
  Sex: Male

DRUGS (4)
  1. REMICADE [Suspect]
     Indication: ANKYLOSING SPONDYLITIS
     Dosage: STRENGTH: 100 MG
     Route: 042
     Dates: start: 20091111, end: 20130308
  2. METHOTREXATE [Suspect]
     Indication: ANKYLOSING SPONDYLITIS
     Route: 048
     Dates: start: 20080320, end: 20130308
  3. ACIDUM FOLICUM [Concomitant]
     Route: 065
  4. IBALGIN [Concomitant]
     Route: 065

REACTIONS (3)
  - Pancreatic neoplasm [Recovered/Resolved]
  - Cholestasis [Recovered/Resolved]
  - Subdiaphragmatic abscess [Recovered/Resolved]
